FAERS Safety Report 4904906-6 (Version None)
Quarter: 2006Q1

REPORT INFORMATION
  Report Type: 
  Country: None (occurrence: None)
  Receive Date: 20060208
  Receipt Date: 20051017
  Transmission Date: 20060701
  Serious: Yes (Hospitalization, Other)
  Sender: FDA-Public Use
  Company Number: 2005/03658

PATIENT
  Age: 84 Year
  Sex: Female

DRUGS (10)
  1. PAXIL [Suspect]
     Indication: DEPRESSION
     Dosage: 20MG TWICE PER DAY
     Route: 048
     Dates: start: 20050823
  2. PREDNISONE [Suspect]
     Indication: TEMPORAL ARTERITIS
     Route: 048
     Dates: start: 20020101
  3. SOLU-CORTEF [Suspect]
     Indication: TEMPORAL ARTERITIS
     Route: 042
     Dates: start: 20050801, end: 20050901
  4. ARANESP [Suspect]
     Dosage: 60MCG WEEKLY
     Route: 058
     Dates: start: 20050801
  5. LOVENOX [Suspect]
     Dosage: 40MG PER DAY
     Route: 058
     Dates: start: 20050801
  6. MEGACE [Concomitant]
     Dosage: 40MG UNKNOWN
     Route: 065
  7. REGLAN [Concomitant]
     Dosage: 10MG UNKNOWN
     Route: 065
  8. PREVACID [Concomitant]
     Dosage: 30MG UNKNOWN
     Route: 065
  9. DIFLUCAN [Concomitant]
     Route: 065
  10. NPH INSULIN [Concomitant]
     Route: 042

REACTIONS (2)
  - DYSARTHRIA [None]
  - DYSPHAGIA [None]
